FAERS Safety Report 14757863 (Version 2)
Quarter: 2019Q1

REPORT INFORMATION
  Report Type: Spontaneous
  Country: US (occurrence: US)
  Receive Date: 20180413
  Receipt Date: 20190308
  Transmission Date: 20190417
  Serious: Yes (Other)
  Sender: FDA-Public Use
  Company Number: US-ASTRAZENECA-2018SE45271

PATIENT
  Sex: Female
  Weight: 77.3 kg

DRUGS (26)
  1. KOMBIGLYZE XR [Suspect]
     Active Substance: METFORMIN HYDROCHLORIDE\SAXAGLIPTIN HYDROCHLORIDE
     Route: 048
     Dates: start: 2016
  2. XANAX [Concomitant]
     Active Substance: ALPRAZOLAM
  3. TRAMADOL. [Concomitant]
     Active Substance: TRAMADOL
  4. SUCRALFATE. [Concomitant]
     Active Substance: SUCRALFATE
  5. PROZAC [Concomitant]
     Active Substance: FLUOXETINE HYDROCHLORIDE
  6. SPIRIVA [Concomitant]
     Active Substance: TIOTROPIUM BROMIDE MONOHYDRATE
  7. CODEINE [Concomitant]
     Active Substance: CODEINE
  8. CRESTOR [Concomitant]
     Active Substance: ROSUVASTATIN CALCIUM
  9. METFORMIN [Concomitant]
     Active Substance: METFORMIN HYDROCHLORIDE
  10. PROPRANOLOL [Concomitant]
     Active Substance: PROPRANOLOL HYDROCHLORIDE
  11. VITAMIN D3 [Concomitant]
     Active Substance: CHOLECALCIFEROL
  12. NORCO [Concomitant]
     Active Substance: ACETAMINOPHEN\HYDROCODONE BITARTRATE
  13. NOVOLOG [Concomitant]
     Active Substance: INSULIN ASPART
  14. MORPHINE [Concomitant]
     Active Substance: MORPHINE
  15. ONGLYZA [Suspect]
     Active Substance: SAXAGLIPTIN HYDROCHLORIDE
     Indication: DIABETES MELLITUS
     Route: 048
     Dates: start: 2016
  16. ASPIRIN. [Concomitant]
     Active Substance: ASPIRIN
  17. PROVENTIL [Concomitant]
     Active Substance: ALBUTEROL
  18. FLUOXETINE [Concomitant]
     Active Substance: FLUOXETINE HYDROCHLORIDE
  19. LORTAB [Concomitant]
     Active Substance: ACETAMINOPHEN\HYDROCODONE BITARTRATE
  20. LISINOPRIL. [Concomitant]
     Active Substance: LISINOPRIL
  21. LYRICA [Concomitant]
     Active Substance: PREGABALIN
  22. GABAPENTIN. [Concomitant]
     Active Substance: GABAPENTIN
  23. TOPIRAMATE. [Concomitant]
     Active Substance: TOPIRAMATE
  24. SYMBICORT [Concomitant]
     Active Substance: BUDESONIDE\FORMOTEROL FUMARATE DIHYDRATE
  25. HYDROCODONE [Concomitant]
     Active Substance: HYDROCODONE
  26. DOCUSATE-SENNA [Concomitant]

REACTIONS (3)
  - Cardiac failure [Unknown]
  - Cardiac failure congestive [Unknown]
  - Cardiovascular disorder [Unknown]
